FAERS Safety Report 20470707 (Version 1)
Quarter: 2022Q1

REPORT INFORMATION
  Report Type: Report from Study
  Country: GB (occurrence: GB)
  Receive Date: 20220214
  Receipt Date: 20220214
  Transmission Date: 20220423
  Serious: Yes (Other)
  Sender: FDA-Public Use
  Company Number: GB-NOVARTISPH-NVSC2022GB029814

PATIENT
  Sex: Male

DRUGS (1)
  1. COSENTYX [Suspect]
     Active Substance: SECUKINUMAB
     Indication: Psoriatic arthropathy
     Dosage: 150 MG, QMO (4 WEEKLY)
     Route: 065

REACTIONS (3)
  - Gastrointestinal carcinoma [Unknown]
  - Psoriatic arthropathy [Not Recovered/Not Resolved]
  - Decreased immune responsiveness [Unknown]
